FAERS Safety Report 8021099-X (Version None)
Quarter: 2011Q4

REPORT INFORMATION
  Report Type: 
  Country: None (occurrence: None)
  Receive Date: 20111220
  Receipt Date: 20111201
  Transmission Date: 20120403
  Serious: Yes (Other)
  Sender: FDA-Public Use
  Company Number: 2011AA001362

PATIENT
  Age: 63 Year
  Sex: Male

DRUGS (2)
  1. PHARMALGEN (801) APIS MELLIFERA (PHARMALGEN (801) APIS MELLIFERA) [Suspect]
     Dosage: 100 MICROGRAMS, SUBCUTANEOUS
     Route: 058
     Dates: start: 20091101
  2. PHARMALGEN (802) VESPULA SPP (PHARMALGEN (802) VESPULA SPP) [Suspect]
     Dosage: 100 MICROGRAMS; SUSPENSION FOR INJECTION, SUBCUTANEOUS
     Route: 058
     Dates: start: 20091101

REACTIONS (8)
  - HEART RATE INCREASED [None]
  - ANAPHYLACTIC SHOCK [None]
  - LOSS OF CONSCIOUSNESS [None]
  - MALAISE [None]
  - HYPERHIDROSIS [None]
  - HYPOTENSION [None]
  - CONVULSION [None]
  - ASTHENIA [None]
